FAERS Safety Report 24140086 (Version 2)
Quarter: 2024Q3

REPORT INFORMATION
  Report Type: Spontaneous
  Country: US (occurrence: US)
  Receive Date: 20240726
  Receipt Date: 20240806
  Transmission Date: 20241016
  Serious: No
  Sender: LEO PHARM
  Company Number: US-LEO Pharma-372276

PATIENT
  Age: 81 Year
  Sex: Male

DRUGS (2)
  1. ADBRY [Suspect]
     Active Substance: TRALOKINUMAB-LDRM
     Indication: Eczema
     Dosage: 4 INJECTIONS (600 MG)?LOADING DOSE
     Route: 058
     Dates: start: 20240702
  2. ADBRY [Suspect]
     Active Substance: TRALOKINUMAB-LDRM
     Indication: Eczema
     Dosage: MAINTENANCE DOSE
     Route: 058
     Dates: start: 20240716

REACTIONS (1)
  - Rash [Recovered/Resolved]
